FAERS Safety Report 9033158 (Version 3)
Quarter: 2013Q1

REPORT INFORMATION
  Report Type: Spontaneous
  Country: US (occurrence: US)
  Receive Date: 20130128
  Receipt Date: 20130306
  Transmission Date: 20140127
  Serious: Yes (Hospitalization, Other)
  Sender: FDA-Public Use
  Company Number: US-ROCHE-1180246

PATIENT
  Age: 56 Year
  Sex: Male
  Weight: 93.07 kg

DRUGS (1)
  1. RITUXAN [Suspect]
     Indication: LEUKAEMIA
     Route: 042
     Dates: start: 20120125, end: 20120524

REACTIONS (16)
  - Convulsion [Unknown]
  - Eye movement disorder [Unknown]
  - Loss of consciousness [Unknown]
  - Incontinence [Recovered/Resolved]
  - Infusion related reaction [Recovered/Resolved]
  - Hyperhidrosis [Recovered/Resolved]
  - Depressed level of consciousness [Recovered/Resolved]
  - Rash [Recovered/Resolved]
  - Headache [Unknown]
  - Erythema [Unknown]
  - Chills [Unknown]
  - Flushing [Unknown]
  - Dyspnoea [Recovered/Resolved]
  - Cough [Recovered/Resolved]
  - Drug hypersensitivity [Unknown]
  - Vomiting [Unknown]
